FAERS Safety Report 8880079 (Version 1)
Quarter: 2012Q4

REPORT INFORMATION
  Report Type: 
  Country: US (occurrence: US)
  Receive Date: 20121031
  Receipt Date: 20121031
  Transmission Date: 20130627
  Serious: Yes (Hospitalization)
  Sender: FDA-Public Use
  Company Number: US-ASTRAZENECA-2012SE80861

PATIENT
  Sex: Male

DRUGS (5)
  1. LISINOPRIL [Suspect]
     Route: 048
  2. TOPROL XL [Suspect]
     Indication: BLOOD PRESSURE ABNORMAL
     Route: 048
  3. OMEPRAZOLE [Suspect]
     Route: 048
  4. LYRICA [Concomitant]
     Route: 048
  5. MOTRIN [Concomitant]
     Indication: ANALGESIC THERAPY

REACTIONS (11)
  - Hypertension [Unknown]
  - Mitral valve prolapse [Unknown]
  - Complement factor decreased [Unknown]
  - Eosinophils urine present [Unknown]
  - Blood creatinine increased [Recovering/Resolving]
  - Pancreatitis [Unknown]
  - Lipase increased [Unknown]
  - Diarrhoea [Unknown]
  - Renal failure acute [Unknown]
  - Gastrooesophageal reflux disease [Unknown]
  - Abdominal pain [Unknown]
